FAERS Safety Report 21064814 (Version 1)
Quarter: 2022Q3

REPORT INFORMATION
  Report Type: Spontaneous
  Country: CN (occurrence: CN)
  Receive Date: 20220711
  Receipt Date: 20220711
  Transmission Date: 20221027
  Serious: Yes (Hospitalization)
  Sender: FDA-Public Use
  Company Number: CN-AMGEN-CHNSP2022115499

PATIENT
  Age: 40 Year
  Sex: Male
  Weight: 67 kg

DRUGS (5)
  1. CINACALCET HYDROCHLORIDE [Suspect]
     Active Substance: CINACALCET HYDROCHLORIDE
     Indication: Hyperparathyroidism secondary
     Route: 065
  2. LANTHANUM CARBONATE [Concomitant]
     Active Substance: LANTHANUM CARBONATE
     Indication: Hyperparathyroidism secondary
     Route: 065
  3. METOPROLOL [Concomitant]
     Active Substance: METOPROLOL
  4. FOLIC ACID [Concomitant]
     Active Substance: FOLIC ACID
  5. FERROUS SUCCINATE [Concomitant]
     Active Substance: FERROUS SUCCINATE

REACTIONS (5)
  - Calciphylaxis [Recovered/Resolved]
  - Renal failure [Unknown]
  - Hypocalcaemia [Unknown]
  - Seizure [Unknown]
  - Drug effect less than expected [Unknown]
